FAERS Safety Report 6493388-1 (Version None)
Quarter: 2009Q4

REPORT INFORMATION
  Report Type: 
  Country: None (occurrence: None)
  Receive Date: 20091211
  Receipt Date: 20091211
  Transmission Date: 20100525
  Serious: Yes (Life-Threatening, Hospitalization, Disabling)
  Sender: FDA-Public Use
  Company Number: None

PATIENT
  Age: 19 Year
  Sex: Female
  Weight: 85 kg

DRUGS (3)
  1. KETAMINE HCL [Suspect]
     Indication: DRUG THERAPY
     Dosage: 1 TIME INTRAMUSCULAR
     Route: 030
     Dates: start: 20091117
  2. METOCLOPRAMIDE SYRUP [Concomitant]
  3. POLYETHYLENE GLYCOL [Concomitant]

REACTIONS (5)
  - GRAND MAL CONVULSION [None]
  - LOSS OF CONSCIOUSNESS [None]
  - MEMORY IMPAIRMENT [None]
  - RASH [None]
  - RESPIRATORY ARREST [None]
